FAERS Safety Report 6582953-9 (Version None)
Quarter: 2010Q1

REPORT INFORMATION
  Report Type: 
  Country: None (occurrence: None)
  Receive Date: 20100204
  Receipt Date: 20100121
  Transmission Date: 20100710
  Serious: Yes (Other)
  Sender: FDA-Public Use
  Company Number: 1000011570

PATIENT
  Age: 87 Year
  Sex: Female

DRUGS (1)
  1. ESCITALOPRAM [Suspect]
     Dosage: (10 MG), ORAL
     Route: 048
     Dates: start: 20090101, end: 20090101

REACTIONS (2)
  - COMMUNICATION DISORDER [None]
  - MUTISM [None]
